FAERS Safety Report 14860574 (Version 2)
Quarter: 2024Q2

REPORT INFORMATION
  Report Type: Spontaneous
  Country: US (occurrence: US)
  Receive Date: 20180508
  Receipt Date: 20240515
  Transmission Date: 20240715
  Serious: No
  Sender: FDA-Public Use
  Company Number: US-TAKEDA-2018TUS015333

PATIENT
  Sex: Female

DRUGS (2)
  1. ROZEREM [Suspect]
     Active Substance: RAMELTEON
     Indication: Initial insomnia
     Dosage: 8 MILLIGRAM
     Route: 048
  2. RAMELTEON [Suspect]
     Active Substance: RAMELTEON
     Indication: Initial insomnia
     Dosage: UNK
     Route: 065

REACTIONS (3)
  - Wrong technique in product usage process [Unknown]
  - Therapeutic product effect decreased [Recovered/Resolved]
  - Drug ineffective [Unknown]
